FAERS Safety Report 4946446-4 (Version None)
Quarter: 2006Q1

REPORT INFORMATION
  Report Type: 
  Country: None (occurrence: None)
  Receive Date: 20060313
  Receipt Date: 20060227
  Transmission Date: 20060701
  Serious: Yes (Other)
  Sender: FDA-Public Use
  Company Number: 2006US000200

PATIENT
  Age: 88 Year
  Sex: Female

DRUGS (4)
  1. PROTOPIC [Suspect]
     Indication: PRURITUS GENERALISED
     Dosage: TOPICAL
     Route: 061
     Dates: start: 20020801, end: 20020101
  2. PROTOPIC [Suspect]
     Indication: PRURITUS GENERALISED
     Dosage: TOPICAL
     Route: 061
     Dates: start: 20050901, end: 20060101
  3. ELIDEL [Suspect]
     Indication: PRURITUS GENERALISED
     Dosage: TOPICAL
     Route: 061
     Dates: start: 20030101, end: 20030101
  4. CORTISONE ACETATE TAB [Concomitant]

REACTIONS (2)
  - DIFFICULTY IN WALKING [None]
  - LYMPHOMA [None]
